FAERS Safety Report 20548329 (Version 2)
Quarter: 2022Q4

REPORT INFORMATION
  Report Type: Report from Study
  Country: US (occurrence: US)
  Receive Date: 20220303
  Receipt Date: 20221215
  Transmission Date: 20230113
  Serious: Yes (Hospitalization, Other)
  Sender: FDA-Public Use
  Company Number: US-TAKEDA-US201606453

PATIENT
  Age: 59 Year
  Sex: Male
  Weight: 67.57 kg

DRUGS (27)
  1. TEDUGLUTIDE [Suspect]
     Active Substance: TEDUGLUTIDE
     Indication: Short-bowel syndrome
     Dosage: 1.8 MILLIGRAM, QD
     Route: 058
     Dates: start: 20140904, end: 20160126
  2. TEDUGLUTIDE [Suspect]
     Active Substance: TEDUGLUTIDE
     Indication: Short-bowel syndrome
     Dosage: 1.8 MILLIGRAM, QD
     Route: 058
     Dates: start: 20140904, end: 20160126
  3. TEDUGLUTIDE [Suspect]
     Active Substance: TEDUGLUTIDE
     Indication: Short-bowel syndrome
     Dosage: 1.8 MILLIGRAM, QD
     Route: 058
     Dates: start: 20140904, end: 20160126
  4. TEDUGLUTIDE [Suspect]
     Active Substance: TEDUGLUTIDE
     Indication: Short-bowel syndrome
     Dosage: 1.8 MILLIGRAM, QD
     Route: 058
     Dates: start: 20140904, end: 20160126
  5. TEDUGLUTIDE [Suspect]
     Active Substance: TEDUGLUTIDE
     Dosage: 1.8 MILLIGRAM, QD
     Route: 042
     Dates: start: 20160314
  6. TEDUGLUTIDE [Suspect]
     Active Substance: TEDUGLUTIDE
     Dosage: 1.8 MILLIGRAM, QD
     Route: 042
     Dates: start: 20160314
  7. TEDUGLUTIDE [Suspect]
     Active Substance: TEDUGLUTIDE
     Dosage: 1.8 MILLIGRAM, QD
     Route: 042
     Dates: start: 20160314
  8. TEDUGLUTIDE [Suspect]
     Active Substance: TEDUGLUTIDE
     Dosage: 1.8 MILLIGRAM, QD
     Route: 042
     Dates: start: 20160314
  9. PN/IV [Concomitant]
     Dosage: 2 LITER, 2/WEEK
     Route: 042
     Dates: start: 201501
  10. AMLODIPINE [Concomitant]
     Active Substance: AMLODIPINE BESYLATE
     Indication: Blood pressure increased
     Dosage: 5 MILLIGRAM, QD
     Route: 048
     Dates: start: 20151103
  11. CALCIUM CARBONATE [Concomitant]
     Active Substance: CALCIUM CARBONATE
     Indication: Calcium deficiency
     Dosage: 1250 MILLIGRAM, BID
     Route: 048
     Dates: start: 20100304
  12. METOPROLOL SUCCINATE EXTENDED [Concomitant]
     Indication: Blood pressure increased
     Dosage: 150 MILLIGRAM, BID
     Route: 048
     Dates: start: 20151103
  13. NITROGLYCERIN [Concomitant]
     Active Substance: NITROGLYCERIN
     Indication: Blood pressure increased
     Dosage: 0.4 MILLIGRAM
     Route: 060
     Dates: start: 20150424
  14. OMEGA-3 FATTY ACIDS [Concomitant]
     Active Substance: OMEGA-3 FATTY ACIDS
     Indication: Malabsorption
     Dosage: 1000 MILLIGRAM, BID
     Route: 048
  15. OXYCODONE [Concomitant]
     Active Substance: OXYCODONE
     Indication: Back pain
     Dosage: 5 MILLIGRAM
     Route: 048
  16. ZOLPIDEM TARTRATE [Concomitant]
     Active Substance: ZOLPIDEM TARTRATE
     Indication: Insomnia
     Dosage: 10 MILLIGRAM
     Route: 048
     Dates: start: 20150811
  17. FERROUS GLUCONATE [Concomitant]
     Active Substance: FERROUS GLUCONATE
     Indication: Anaemia
     Dosage: 325 MG, 2X/DAY:BID
     Route: 048
     Dates: start: 20111114
  18. FENOFIBRATE [Concomitant]
     Active Substance: FENOFIBRATE
     Indication: Hypertriglyceridaemia
     Dosage: 1 TAB, 1X/DAY:QD
     Route: 048
     Dates: start: 20140818
  19. ANDROGEL 1.62% [Concomitant]
     Active Substance: TESTOSTERONE
     Indication: Hypogonadism
     Dosage: 40.5 MILLIGRAM, MONTHLY
     Route: 061
     Dates: start: 201512
  20. PREDNISOLONE 1% ACETATE OPHTHALMIC SUSPENSION [Concomitant]
     Indication: Corneal oedema
     Dosage: 1 GTT, 1X/DAY:QD
     Route: 047
  21. LORATADINE [Concomitant]
     Active Substance: LORATADINE
     Indication: Seasonal allergy
     Dosage: 10 MG, 1X/DAY:QD
     Route: 048
  22. FLUTICASONE PROPIONATE [Concomitant]
     Active Substance: FLUTICASONE PROPIONATE
     Indication: Seasonal allergy
     Dosage: 2 SPRAY, 1X/DAY:QD
     Route: 045
  23. PLAVIX [Concomitant]
     Active Substance: CLOPIDOGREL BISULFATE
     Indication: Myocardial infarction
     Dosage: 75 MG, 1X/DAY:QD
     Route: 048
     Dates: start: 20150323
  24. ZOFRAN [Concomitant]
     Active Substance: ONDANSETRON HYDROCHLORIDE
     Indication: Nephrolithiasis
     Dosage: 4 MILLIGRAM
     Route: 048
     Dates: start: 20170703, end: 20170705
  25. ZOFRAN [Concomitant]
     Active Substance: ONDANSETRON HYDROCHLORIDE
     Indication: Ileus
     Dosage: 4 MILLIGRAM, SINGLE
     Route: 042
     Dates: start: 20171102, end: 20171102
  26. DILAUDID [Concomitant]
     Active Substance: HYDROMORPHONE HYDROCHLORIDE
     Indication: Nephrolithiasis
     Dosage: 2 MILLIGRAM
     Route: 048
     Dates: start: 20170810, end: 20170814
  27. DILAUDID [Concomitant]
     Active Substance: HYDROMORPHONE HYDROCHLORIDE
     Indication: Haematuria
     Dosage: 0.05 MILLIGRAM, PRN
     Route: 042
     Dates: start: 20171102, end: 20171102

REACTIONS (2)
  - Acute kidney injury [Not Recovered/Not Resolved]
  - Dehydration [Recovered/Resolved]

NARRATIVE: CASE EVENT DATE: 20160303
